FAERS Safety Report 10305170 (Version 1)
Quarter: 2014Q3

REPORT INFORMATION
  Report Type: Spontaneous
  Country: IT (occurrence: IT)
  Receive Date: 20140715
  Receipt Date: 20140715
  Transmission Date: 20150326
  Serious: Yes (Death)
  Sender: FDA-Public Use
  Company Number: IT-TEVA-493763ISR

PATIENT
  Age: 45 Year
  Sex: Female

DRUGS (2)
  1. CAPECITABINE [Suspect]
     Active Substance: CAPECITABINE
     Indication: BREAST CANCER METASTATIC
     Dosage: STANDARD DOSE
     Route: 065
  2. TRASTUZUMAB [Concomitant]
     Active Substance: TRASTUZUMAB
     Indication: BREAST CANCER METASTATIC
     Dosage: STANDARD DOSE
     Route: 065

REACTIONS (5)
  - Multi-organ failure [Fatal]
  - Mucosal inflammation [Fatal]
  - Palmar-plantar erythrodysaesthesia syndrome [Fatal]
  - Toxicity to various agents [Fatal]
  - Leukopenia [Fatal]
